FAERS Safety Report 25424260 (Version 1)
Quarter: 2025Q2

REPORT INFORMATION
  Report Type: Spontaneous
  Country: PR (occurrence: None)
  Receive Date: 20250605
  Receipt Date: 20250605
  Transmission Date: 20250716
  Serious: Yes (Other)
  Sender: FDA-CTU
  Company Number: None

PATIENT
  Age: 45 Year
  Sex: Female
  Weight: 105.23 kg

DRUGS (1)
  1. PURIFIED CORTROPHIN GEL [Suspect]
     Active Substance: CORTICOTROPIN
     Dosage: STRENGTH: 80 UNIT/ 1MG MDV VIALS ML
     Dates: start: 20241227, end: 20250328

REACTIONS (5)
  - Vision blurred [None]
  - Muscle spasms [None]
  - Dizziness [None]
  - Blood potassium increased [None]
  - Blood glucose increased [None]

NARRATIVE: CASE EVENT DATE: 20250605
